FAERS Safety Report 6532441-0 (Version None)
Quarter: 2010Q1

REPORT INFORMATION
  Report Type: 
  Country: None (occurrence: None)
  Receive Date: 20100110
  Receipt Date: 20091124
  Transmission Date: 20100710
  Serious: No
  Sender: FDA-Public Use
  Company Number: US-BAUSCH-2009BL006208

PATIENT
  Age: 4 Year
  Sex: Female

DRUGS (1)
  1. OFLOXACIN [Suspect]
     Route: 047
     Dates: start: 20091120, end: 20091123

REACTIONS (3)
  - DRUG DISPENSING ERROR [None]
  - EYE IRRITATION [None]
  - WRONG DRUG ADMINISTERED [None]
